FAERS Safety Report 4379466-1 (Version None)
Quarter: 2004Q2

REPORT INFORMATION
  Report Type: 
  Country: None (occurrence: None)
  Receive Date: 20040617
  Receipt Date: 20040609
  Transmission Date: 20050107
  Serious: Yes (Other)
  Sender: FDA-Public Use
  Company Number: CA-AMGEN-US079875

PATIENT
  Age: 78 Year
  Sex: Female

DRUGS (2)
  1. ARANESP [Suspect]
     Indication: ANAEMIA
     Route: 058
  2. EPREX [Suspect]
     Route: 042

REACTIONS (1)
  - THERAPEUTIC RESPONSE DECREASED [None]
